FAERS Safety Report 18200824 (Version 1)
Quarter: 2020Q3

REPORT INFORMATION
  Report Type: Spontaneous
  Country: US (occurrence: US)
  Receive Date: 20200827
  Receipt Date: 20200827
  Transmission Date: 20201103
  Serious: No
  Sender: FDA-Public Use
  Company Number: US-SA-2020SA227428

PATIENT

DRUGS (3)
  1. CEREZYME [Suspect]
     Active Substance: IMIGLUCERASE
     Dosage: UNK
     Dates: start: 20111015
  2. CEREZYME [Suspect]
     Active Substance: IMIGLUCERASE
     Dosage: UNK
     Dates: start: 19920601, end: 20030315
  3. CEREZYME [Suspect]
     Active Substance: IMIGLUCERASE
     Dosage: UNK
     Dates: start: 20091023, end: 20100501

REACTIONS (1)
  - Exposure during pregnancy [Unknown]
